FAERS Safety Report 9270463 (Version 1)
Quarter: 2013Q2

REPORT INFORMATION
  Report Type: Spontaneous
  Country: BR (occurrence: BR)
  Receive Date: 20130503
  Receipt Date: 20130503
  Transmission Date: 20140414
  Serious: Yes (Hospitalization, Other)
  Sender: FDA-Public Use
  Company Number: BR-PFIZER INC-2013136053

PATIENT
  Age: 49 Year
  Sex: Female
  Weight: 104 kg

DRUGS (1)
  1. FRONTAL [Suspect]
     Dosage: 2 MG (ONE TABLET), 1X/DAY
     Route: 048
     Dates: start: 2006

REACTIONS (5)
  - Ligament rupture [Unknown]
  - Fall [Unknown]
  - Ligament sprain [Unknown]
  - Depression [Unknown]
  - Anxiety [Unknown]
